FAERS Safety Report 26185584 (Version 1)
Quarter: 2025Q4

REPORT INFORMATION
  Report Type: Spontaneous
  Country: GB (occurrence: GB)
  Receive Date: 20251222
  Receipt Date: 20251222
  Transmission Date: 20260117
  Serious: Yes (Other)
  Sender: MYLAN
  Company Number: GB-MYLANLABS-2025M1107303

PATIENT
  Age: 63 Year
  Sex: Female

DRUGS (5)
  1. PACLITAXEL [Suspect]
     Active Substance: PACLITAXEL
     Indication: Ovarian epithelial cancer
     Dosage: 6 CYCLICAL, ON DAY 1 OF A 21-DAY CYCLE
  2. IRON [Suspect]
     Active Substance: IRON
     Indication: Anaemia
     Dosage: UNK
     Route: 061
  3. CARBOPLATIN [Suspect]
     Active Substance: CARBOPLATIN
     Indication: Ovarian epithelial cancer
     Dosage: 6 CYCLICAL, ON DAY 1 OF A 21-DAY CYCLE
  4. DEXAMETHASONE [Concomitant]
     Active Substance: DEXAMETHASONE
     Indication: Ovarian epithelial cancer
     Dosage: 20 MILLIGRAM, INFUSION
  5. DEXAMETHASONE [Concomitant]
     Active Substance: DEXAMETHASONE
     Dosage: 8 MILLIGRAM, INFUSION

REACTIONS (7)
  - Anaemia [Not Recovered/Not Resolved]
  - Renal failure [Unknown]
  - Hyperkalaemia [Unknown]
  - Metabolic acidosis [Unknown]
  - Fatigue [Unknown]
  - Haematuria [Unknown]
  - Nausea [Unknown]
